FAERS Safety Report 17246635 (Version 1)
Quarter: 2020Q1

REPORT INFORMATION
  Report Type: Report from Study
  Country: None (occurrence: QA)
  Receive Date: 20200108
  Receipt Date: 20200108
  Transmission Date: 20200409
  Serious: Yes (Death)
  Sender: FDA-Public Use
  Company Number: QA-ABBVIE-19K-132-3174404-00

PATIENT
  Age: 5 Month
  Sex: Female

DRUGS (4)
  1. SYNAGIS [Suspect]
     Active Substance: PALIVIZUMAB
     Indication: PREMATURE BABY
     Route: 030
     Dates: start: 20191008, end: 20191124
  2. SYNAGIS [Suspect]
     Active Substance: PALIVIZUMAB
     Indication: RESPIRATORY SYNCYTIAL VIRUS INFECTION
  3. SYNAGIS [Suspect]
     Active Substance: PALIVIZUMAB
     Indication: ANTIVIRAL PROPHYLAXIS
  4. SYNAGIS [Suspect]
     Active Substance: PALIVIZUMAB
     Indication: LUNG DISORDER

REACTIONS (1)
  - Death [Fatal]

NARRATIVE: CASE EVENT DATE: 20191124
